FAERS Safety Report 10446339 (Version 2)
Quarter: 2014Q3

REPORT INFORMATION
  Report Type: Report from Study
  Country: JP (occurrence: JP)
  Receive Date: 20140911
  Receipt Date: 20140911
  Transmission Date: 20150326
  Serious: Yes (Hospitalization)
  Sender: FDA-Public Use
  Company Number: JP-BIOGENIDEC-2013BI039768

PATIENT
  Age: 31 Year
  Sex: Female

DRUGS (5)
  1. LENDORMIN [Concomitant]
     Active Substance: BROTIZOLAM
     Dates: start: 20100827
  2. DEPAKENE [Concomitant]
     Active Substance: VALPROIC ACID
     Dates: start: 20101122
  3. ALESION [Concomitant]
     Active Substance: EPINASTINE HYDROCHLORIDE
     Dates: start: 20111025
  4. GABAPEN [Concomitant]
     Active Substance: GABAPENTIN
     Dates: start: 20101020
  5. TYSABRI [Suspect]
     Active Substance: NATALIZUMAB
     Indication: RELAPSING-REMITTING MULTIPLE SCLEROSIS
     Dates: start: 20110530

REACTIONS (1)
  - Meningitis [Recovered/Resolved]

NARRATIVE: CASE EVENT DATE: 20130426
